FAERS Safety Report 4537071-8 (Version None)
Quarter: 2004Q4

REPORT INFORMATION
  Report Type: 
  Country: None (occurrence: None)
  Receive Date: 20041221
  Receipt Date: 20041208
  Transmission Date: 20050328
  Serious: Yes (Death)
  Sender: FDA-Public Use
  Company Number: FABR-10599

PATIENT
  Age: 60 Year
  Sex: Male
  Weight: 68 kg

DRUGS (17)
  1. FABRAZYME [Suspect]
     Indication: FABRY'S DISEASE
     Dosage: 70 MG Q2WKS IV
     Route: 042
     Dates: start: 20030623, end: 20040520
  2. NEORAL [Concomitant]
  3. LISINOPRIL [Concomitant]
  4. CARDIZEM [Concomitant]
  5. ATACAND [Concomitant]
  6. ZOCOR [Concomitant]
  7. ELAVIL [Concomitant]
  8. PLAVIX [Concomitant]
  9. ASPIRIN [Concomitant]
  10. TEMAZEPAM [Concomitant]
  11. CALCITRIOL [Concomitant]
  12. LASIX [Concomitant]
  13. TYLOX [Concomitant]
  14. MULTI-VITAMINS [Concomitant]
  15. FOLIC ACID [Concomitant]
  16. VITAMIN B-12 [Concomitant]
  17. PENICILLIN [Concomitant]

REACTIONS (4)
  - CARDIAC ARREST [None]
  - CORONARY ARTERY ATHEROSCLEROSIS [None]
  - MYOCARDIAL INFARCTION [None]
  - PNEUMONIA [None]
